FAERS Safety Report 4284510-6 (Version None)
Quarter: 2004Q1

REPORT INFORMATION
  Report Type: 
  Country: None (occurrence: None)
  Receive Date: 20040130
  Receipt Date: 20040122
  Transmission Date: 20041129
  Serious: Yes (Hospitalization, Other)
  Sender: FDA-Public Use
  Company Number: 2004196301GB

PATIENT
  Age: 33 Year
  Sex: Male
  Weight: 82 kg

DRUGS (12)
  1. ZYVOX [Suspect]
     Indication: INFECTION
     Dosage: 600 MG, BID, ORAL
     Route: 048
     Dates: start: 20020711
  2. CYCLOSPORINE [Concomitant]
  3. MYCOPHENOLATE MOFETIL (MYCOPHENOLATE MOFETIL) [Concomitant]
  4. OMEPRAZOLE [Concomitant]
  5. PARACETAMOL [Concomitant]
  6. DF118 (DIHYDROCODEINE BITARTRATE) [Concomitant]
  7. ACYCLOVIR [Concomitant]
  8. SIMVASTATIN [Concomitant]
  9. TITRALAC (AMINOACETIC ACID) [Concomitant]
  10. TRIMETHOPRIM [Concomitant]
  11. DAPSONE [Concomitant]
  12. HEPARIN [Concomitant]

REACTIONS (4)
  - BIOPSY BONE MARROW ABNORMAL [None]
  - BONE MARROW TOXICITY [None]
  - CONTUSION [None]
  - THROMBOCYTOPENIA [None]
